FAERS Safety Report 11965441 (Version 1)
Quarter: 2016Q1

REPORT INFORMATION
  Report Type: Spontaneous
  Country: US (occurrence: None)
  Receive Date: 20160122
  Receipt Date: 20160122
  Transmission Date: 20160526
  Serious: Yes (Other)
  Sender: FDA-Public Use
  Company Number: None

PATIENT
  Age: 57 Year
  Sex: Female

DRUGS (6)
  1. ARED2 [Concomitant]
  2. VITAMIN D [Concomitant]
     Active Substance: CHOLECALCIFEROL
  3. VITAMIN C [Concomitant]
     Active Substance: ASCORBIC ACID
  4. MELOXICAM 15MG TABLETS LUPIN? [Suspect]
     Active Substance: MELOXICAM
     Indication: PAIN
     Dosage: BY MOUTH + FULL GLASS OF WATER + FOOD
     Route: 048
     Dates: start: 201510, end: 20151219
  5. MELOXICAM 15MG TABLETS LUPIN? [Suspect]
     Active Substance: MELOXICAM
     Indication: INFLAMMATION
     Dosage: BY MOUTH + FULL GLASS OF WATER + FOOD
     Route: 048
     Dates: start: 201510, end: 20151219
  6. MELOXICAM 15MG TABLETS LUPIN? [Suspect]
     Active Substance: MELOXICAM
     Indication: OSTEOARTHRITIS
     Dosage: BY MOUTH + FULL GLASS OF WATER + FOOD
     Route: 048
     Dates: start: 201510, end: 20151219

REACTIONS (1)
  - Vaginal haemorrhage [None]

NARRATIVE: CASE EVENT DATE: 20151218
